FAERS Safety Report 6741342-4 (Version None)
Quarter: 2010Q2

REPORT INFORMATION
  Report Type: 
  Country: None (occurrence: None)
  Receive Date: 20100526
  Receipt Date: 20100515
  Transmission Date: 20101027
  Serious: Yes (Other)
  Sender: FDA-Public Use
  Company Number: RU-PFIZER INC-2010062080

PATIENT
  Age: 28 Year
  Sex: Female
  Weight: 36 kg

DRUGS (4)
  1. ZYVOX [Suspect]
     Indication: PNEUMONIA
     Dosage: 600 MG, 2X/DAY
     Route: 041
     Dates: start: 20100508, end: 20100514
  2. BISEPTOL [Concomitant]
     Indication: PNEUMONIA
     Dosage: UNK
     Route: 041
     Dates: start: 20100502
  3. COMBIVIR [Concomitant]
     Indication: HIV INFECTION
     Dosage: UNK
     Route: 048
     Dates: start: 20091215
  4. BROMHEXINE [Concomitant]
     Indication: PNEUMONIA
     Dosage: 8 MG, 3X/DAY
     Route: 048
     Dates: start: 20100418

REACTIONS (4)
  - FEELING COLD [None]
  - NAUSEA [None]
  - PYREXIA [None]
  - VEIN PAIN [None]
